FAERS Safety Report 13414927 (Version 1)
Quarter: 2017Q2

REPORT INFORMATION
  Report Type: Spontaneous
  Country: US (occurrence: US)
  Receive Date: 20170407
  Receipt Date: 20170407
  Transmission Date: 20170830
  Serious: No
  Sender: FDA-Public Use
  Company Number: US-GLAXOSMITHKLINE-US2017046494

PATIENT
  Age: 76 Year
  Sex: Male

DRUGS (2)
  1. DULERA [Concomitant]
     Active Substance: FORMOTEROL FUMARATE DIHYDRATE\MOMETASONE FUROATE
     Dosage: UNK PUFF(S), UNK
  2. VENTOLIN HFA [Suspect]
     Active Substance: ALBUTEROL SULFATE
     Indication: PRODUCT USED FOR UNKNOWN INDICATION
     Dosage: 2 PUFF(S), PRN
     Route: 055
     Dates: start: 2013

REACTIONS (8)
  - Dyspnoea [Unknown]
  - Productive cough [Unknown]
  - Dizziness [Unknown]
  - Multiple allergies [Unknown]
  - Product cleaning inadequate [Recovered/Resolved]
  - Cough [Unknown]
  - Device use error [Recovered/Resolved]
  - Drug ineffective [Unknown]

NARRATIVE: CASE EVENT DATE: 201703
